FAERS Safety Report 7971469-0 (Version None)
Quarter: 2011Q4

REPORT INFORMATION
  Report Type: 
  Country: None (occurrence: None)
  Receive Date: 20111212
  Receipt Date: 20111205
  Transmission Date: 20120403
  Serious: No
  Sender: FDA-Public Use
  Company Number: US-PFIZER INC-2011298032

PATIENT
  Sex: Male
  Weight: 83.9 kg

DRUGS (1)
  1. TYGACIL [Suspect]
     Indication: BACTERIAL INFECTION
     Dosage: UNK 2X/DAY
     Dates: end: 20110101

REACTIONS (1)
  - DRUG INEFFECTIVE [None]
